FAERS Safety Report 10908322 (Version 4)
Quarter: 2016Q1

REPORT INFORMATION
  Report Type: Spontaneous
  Country: JP (occurrence: JP)
  Receive Date: 20150312
  Receipt Date: 20160208
  Transmission Date: 20160525
  Serious: Yes (Death, Hospitalization, Other)
  Sender: FDA-Public Use
  Company Number: JP-ACTELION-A-CH2015-113516

PATIENT
  Age: 72 Year
  Sex: Male
  Weight: 47.2 kg

DRUGS (12)
  1. TRACLEER [Suspect]
     Active Substance: BOSENTAN
     Indication: PULMONARY ARTERIAL HYPERTENSION
     Dosage: UNK
     Route: 048
     Dates: start: 20141128
  2. OXYGEN. [Concomitant]
     Active Substance: OXYGEN
  3. TADALAFIL [Concomitant]
     Active Substance: TADALAFIL
  4. VELETRI [Suspect]
     Active Substance: EPOPROSTENOL
     Dosage: 0.17 NG/KG, PER MIN
     Route: 042
     Dates: start: 20141224, end: 20150123
  5. SILDENAFIL. [Concomitant]
     Active Substance: SILDENAFIL
     Dosage: UNK
     Dates: start: 201409
  6. VELETRI [Suspect]
     Active Substance: EPOPROSTENOL
     Dosage: 16 NG/KG, PER MIN
     Route: 042
     Dates: start: 2015, end: 20150205
  7. VELETRI [Suspect]
     Active Substance: EPOPROSTENOL
     Indication: PULMONARY ARTERIAL HYPERTENSION
     Dosage: 15 NG/KG, PER MIN
     Route: 042
     Dates: start: 20150124, end: 2015
  8. INDACATEROL MALEATE [Concomitant]
     Active Substance: INDACATEROL MALEATE
  9. VELETRI [Suspect]
     Active Substance: EPOPROSTENOL
     Dosage: 0.3 NG/KG, PER MIN
     Route: 042
     Dates: start: 2015, end: 20150220
  10. VELETRI [Suspect]
     Active Substance: EPOPROSTENOL
     Dosage: UNK NG/KG, PER MIN
     Route: 042
     Dates: start: 20150205
  11. WARFARIN POTASSIUM [Concomitant]
     Active Substance: WARFARIN POTASSIUM
  12. VELETRI [Suspect]
     Active Substance: EPOPROSTENOL
     Dosage: 10 NG/KG, PER MIN
     Route: 042
     Dates: start: 20150131

REACTIONS (5)
  - Oxygen saturation decreased [Fatal]
  - Respiratory failure [Fatal]
  - Emphysema [Fatal]
  - Concomitant disease aggravated [Unknown]
  - Respiratory disorder [Fatal]

NARRATIVE: CASE EVENT DATE: 20150131
